FAERS Safety Report 17016151 (Version 1)
Quarter: 2019Q4

REPORT INFORMATION
  Report Type: Spontaneous
  Country: US (occurrence: US)
  Receive Date: 20191003
  Receipt Date: 20191003
  Transmission Date: 20200122
  Serious: No
  Sender: FDA-Public Use
  Company Number: None

PATIENT
  Age: 56 Year
  Sex: Female
  Weight: 68.04 kg

DRUGS (19)
  1. MV [Concomitant]
  2. TRAZODONE [Concomitant]
     Active Substance: TRAZODONE HYDROCHLORIDE
  3. NP THYROID [Concomitant]
     Active Substance: LEVOTHYROXINE\LIOTHYRONINE
  4. BIOTIN [Concomitant]
     Active Substance: BIOTIN
  5. TRAMADOL. [Concomitant]
     Active Substance: TRAMADOL
  6. ACYCLOVIR. [Concomitant]
     Active Substance: ACYCLOVIR
  7. IMMUNE BOOSTER (BOVINE) [Concomitant]
  8. VIT D [Concomitant]
     Active Substance: VITAMIN D NOS
  9. TIZANIDINE HCL 4MG [Suspect]
     Active Substance: TIZANIDINE HYDROCHLORIDE
     Indication: MUSCLE SPASMS
     Dosage: ?          QUANTITY:4 MG MILLIGRAM(S);OTHER FREQUENCY:6 TIMES A DAY;?
     Route: 048
     Dates: end: 20190905
  10. TIZANIDINE HCL 4MG [Suspect]
     Active Substance: TIZANIDINE HYDROCHLORIDE
     Indication: LYME DISEASE
     Dosage: ?          QUANTITY:4 MG MILLIGRAM(S);OTHER FREQUENCY:6 TIMES A DAY;?
     Route: 048
     Dates: end: 20190905
  11. NORCO [Concomitant]
     Active Substance: ACETAMINOPHEN\HYDROCODONE BITARTRATE
  12. CYMBALTA [Concomitant]
     Active Substance: DULOXETINE HYDROCHLORIDE
  13. TIZANIDINE HCL 4MG [Suspect]
     Active Substance: TIZANIDINE HYDROCHLORIDE
     Indication: BACK PAIN
     Dosage: ?          QUANTITY:4 MG MILLIGRAM(S);OTHER FREQUENCY:6 TIMES A DAY;?
     Route: 048
     Dates: end: 20190905
  14. LEVOTHYROXINE. [Concomitant]
     Active Substance: LEVOTHYROXINE
  15. IMITREX [Concomitant]
     Active Substance: SUMATRIPTAN SUCCINATE
  16. BUTALBITAL [Concomitant]
     Active Substance: BUTALBITAL
  17. ALEVE [Concomitant]
     Active Substance: NAPROXEN SODIUM
  18. TIZANIDINE HCL 4MG [Suspect]
     Active Substance: TIZANIDINE HYDROCHLORIDE
     Indication: NECK PAIN
     Dosage: ?          QUANTITY:4 MG MILLIGRAM(S);OTHER FREQUENCY:6 TIMES A DAY;?
     Route: 048
     Dates: end: 20190905
  19. GABAPENTIN. [Concomitant]
     Active Substance: GABAPENTIN

REACTIONS (2)
  - Drug level decreased [None]
  - Drug screen positive [None]

NARRATIVE: CASE EVENT DATE: 20190905
